FAERS Safety Report 16463208 (Version 1)
Quarter: 2019Q2

REPORT INFORMATION
  Report Type: Spontaneous
  Country: US (occurrence: US)
  Receive Date: 20190621
  Receipt Date: 20190621
  Transmission Date: 20190711
  Serious: No
  Sender: FDA-Public Use
  Company Number: US-PFIZER INC-2019261258

PATIENT
  Sex: Female

DRUGS (2)
  1. ADVIL LIQUI-GELS [Suspect]
     Active Substance: IBUPROFEN
     Indication: PAIN
  2. NOVOCAIN [Suspect]
     Active Substance: PROCAINE HYDROCHLORIDE
     Indication: TOOTHACHE
     Dosage: UNK

REACTIONS (4)
  - Erythema [Unknown]
  - Drug hypersensitivity [Unknown]
  - Rash [Unknown]
  - Rash pruritic [Unknown]
